FAERS Safety Report 25325378 (Version 1)
Quarter: 2025Q2

REPORT INFORMATION
  Report Type: Report from Study
  Country: CA (occurrence: CA)
  Receive Date: 20250516
  Receipt Date: 20250516
  Transmission Date: 20250717
  Serious: Yes (Other)
  Sender: ABBVIE
  Company Number: CA-ABBVIE-6282202

PATIENT
  Sex: Male

DRUGS (4)
  1. LUPRON [Suspect]
     Active Substance: LEUPROLIDE ACETATE
     Indication: Prostate cancer
     Dosage: STRENGTH: 22.5 MG
     Route: 030
     Dates: start: 20250214
  2. LUPRON [Suspect]
     Active Substance: LEUPROLIDE ACETATE
     Dosage: STRENGTH: 22.5 MG
     Route: 030
     Dates: start: 20111215
  3. XTANDI [Concomitant]
     Active Substance: ENZALUTAMIDE
     Indication: Product used for unknown indication
  4. FLUTAMIDE [Concomitant]
     Active Substance: FLUTAMIDE
     Indication: Product used for unknown indication

REACTIONS (1)
  - Myocardial infarction [Unknown]
